FAERS Safety Report 6822199-X (Version None)
Quarter: 2010Q3

REPORT INFORMATION
  Report Type: 
  Country: None (occurrence: None)
  Receive Date: 20100708
  Receipt Date: 20100628
  Transmission Date: 20110219
  Serious: Yes (Hospitalization)
  Sender: FDA-Public Use
  Company Number: US-WYE-H15921910

PATIENT
  Sex: Female
  Weight: 90.8 kg

DRUGS (8)
  1. PRISTIQ [Suspect]
     Indication: DEPRESSION
     Dates: start: 20100301, end: 20100401
  2. PRISTIQ [Suspect]
     Dates: start: 20100401, end: 20100601
  3. PRISTIQ [Suspect]
     Dates: start: 20100601
  4. LOTREL [Concomitant]
     Indication: HYPERTENSION
     Dosage: ONCE DAILY
     Dates: end: 20100601
  5. LOTREL [Concomitant]
     Dosage: TWICE DAILY
     Dates: start: 20100601
  6. SEROQUEL [Suspect]
     Indication: DEPRESSION
     Dates: start: 20100401
  7. LAMICTAL [Concomitant]
     Indication: DEPRESSION
     Dosage: UNKNOWN
  8. ZANTAC [Concomitant]
     Indication: GASTRIC DISORDER
     Dosage: UNKNOWN

REACTIONS (9)
  - CONDITION AGGRAVATED [None]
  - DEPRESSION [None]
  - DIARRHOEA [None]
  - FREQUENT BOWEL MOVEMENTS [None]
  - HEADACHE [None]
  - HYPERTENSION [None]
  - INTENTIONAL DRUG MISUSE [None]
  - MYALGIA [None]
  - PAIN IN EXTREMITY [None]
